FAERS Safety Report 8971525 (Version 1)
Quarter: 2012Q4

REPORT INFORMATION
  Report Type: 
  Country: JP (occurrence: JP)
  Receive Date: 20121217
  Receipt Date: 20121217
  Transmission Date: 20130627
  Serious: Yes (Other)
  Sender: FDA-Public Use
  Company Number: JP-ASTRAZENECA-2012SE93231

PATIENT
  Sex: Female

DRUGS (1)
  1. FASLODEX [Suspect]
     Dosage: Dose unknown
     Route: 030
     Dates: start: 201206, end: 201210

REACTIONS (3)
  - Metastases to bone [Unknown]
  - Depressive symptom [Unknown]
  - Rash [Unknown]
